FAERS Safety Report 7582118-8 (Version None)
Quarter: 2011Q2

REPORT INFORMATION
  Report Type: 
  Country: None (occurrence: None)
  Receive Date: 20110630
  Receipt Date: 20110621
  Transmission Date: 20111010
  Serious: No
  Sender: FDA-Public Use
  Company Number: US-BIOGENIDEC-2011BI022982

PATIENT
  Age: 54 Year
  Sex: Male

DRUGS (3)
  1. TYSABRI [Suspect]
     Indication: MULTIPLE SCLEROSIS
     Route: 042
     Dates: start: 20110501
  2. AVONEX [Concomitant]
     Indication: MULTIPLE SCLEROSIS
     Route: 030
     Dates: start: 19960504
  3. AVONEX [Concomitant]
     Route: 030
     Dates: start: 19990424

REACTIONS (4)
  - COORDINATION ABNORMAL [None]
  - MIGRAINE [None]
  - MUSCULOSKELETAL STIFFNESS [None]
  - SLUGGISHNESS [None]
